FAERS Safety Report 24208095 (Version 1)
Quarter: 2024Q3

REPORT INFORMATION
  Report Type: Report from Study
  Country: EG (occurrence: EG)
  Receive Date: 20240814
  Receipt Date: 20240814
  Transmission Date: 20241016
  Serious: Yes (Other)
  Sender: ROCHE
  Company Number: EG-002147023-NVSC2024EG160993

PATIENT
  Age: 19 Year
  Sex: Female
  Weight: 75 kg

DRUGS (3)
  1. XOLAIR [Suspect]
     Active Substance: OMALIZUMAB
     Indication: Urticaria
     Dosage: 1 DOSAGE FORM
     Route: 050
     Dates: start: 20240627
  2. CYCLOSPORINE [Suspect]
     Active Substance: CYCLOSPORINE
     Indication: Immunodeficiency
     Dosage: 1 DOSAGE FORM, QD
     Route: 050
     Dates: start: 20240628
  3. LYRICA [Concomitant]
     Active Substance: PREGABALIN
     Indication: Sedative therapy
     Dosage: ONCE CAPSULE A DAY IN THE EVENING
     Route: 050
     Dates: start: 20240701, end: 20240801

REACTIONS (3)
  - Hypertension [Not Recovered/Not Resolved]
  - Tachycardia [Recovered/Resolved]
  - Off label use [Unknown]

NARRATIVE: CASE EVENT DATE: 20240701
